FAERS Safety Report 5720787-5 (Version None)
Quarter: 2008Q2

REPORT INFORMATION
  Report Type: 
  Country: None (occurrence: None)
  Receive Date: 20080429
  Receipt Date: 20080421
  Transmission Date: 20081010
  Serious: Yes (Other)
  Sender: FDA-Public Use
  Company Number: DE-BAYER-200816405GPV

PATIENT
  Age: 55 Year
  Sex: Female
  Weight: 76 kg

DRUGS (3)
  1. AVELOX [Suspect]
     Indication: SINUSITIS
     Dosage: TOTAL DAILY DOSE: 400 MG  UNIT DOSE: 400 MG
     Route: 048
     Dates: start: 20080107, end: 20080110
  2. METFORMIN HCL [Concomitant]
     Indication: DIABETES MELLITUS
     Dosage: TOTAL DAILY DOSE: 2000 MG  UNIT DOSE: 1000 MG
     Route: 065
  3. BELOC ZOK [Concomitant]
     Indication: DRUG USE FOR UNKNOWN INDICATION
     Dosage: TOTAL DAILY DOSE: 47.5 MG  UNIT DOSE: 47.5 MG
     Route: 065

REACTIONS (9)
  - ASTHENIA [None]
  - DIZZINESS [None]
  - GAIT DISTURBANCE [None]
  - HEADACHE [None]
  - MENTAL DISORDER [None]
  - MUSCULAR WEAKNESS [None]
  - NERVOUS SYSTEM DISORDER [None]
  - PSYCHOSOMATIC DISEASE [None]
  - SENSATION OF HEAVINESS [None]
